FAERS Safety Report 16239732 (Version 2)
Quarter: 2019Q3

REPORT INFORMATION
  Report Type: Report from Study
  Country: CA (occurrence: CA)
  Receive Date: 20190425
  Receipt Date: 20190729
  Transmission Date: 20191004
  Serious: Yes (Other)
  Sender: FDA-Public Use
  Company Number: CA-ROCHE-2307622

PATIENT
  Age: 80 Year
  Sex: Female

DRUGS (1)
  1. RANIBIZUMAB. [Suspect]
     Active Substance: RANIBIZUMAB
     Indication: NEOVASCULAR AGE-RELATED MACULAR DEGENERATION
     Dosage: 0.5 MG/0.05 ML
     Route: 050

REACTIONS (6)
  - Vitritis [Unknown]
  - Eye inflammation [Recovered/Resolved]
  - Vitreous opacities [Unknown]
  - Anterior chamber disorder [Unknown]
  - Visual impairment [Recovered/Resolved]
  - Eye pain [Unknown]
